FAERS Safety Report 18394907 (Version 1)
Quarter: 2020Q4

REPORT INFORMATION
  Report Type: Spontaneous
  Country: NZ (occurrence: NZ)
  Receive Date: 20201016
  Receipt Date: 20201016
  Transmission Date: 20210114
  Serious: Yes (Life-Threatening, Hospitalization, Other)
  Sender: FDA-Public Use
  Company Number: NZ-GLAXOSMITHKLINE-NZ2020APC199331

PATIENT
  Age: 15 Year
  Sex: Male
  Weight: 49.2 kg

DRUGS (13)
  1. FLIXOTIDE [Suspect]
     Active Substance: FLUTICASONE PROPIONATE
     Indication: BRONCHOPULMONARY ASPERGILLOSIS ALLERGIC
     Dosage: 125?G 2 PUFFS INHALATION TWICE A DAY
     Route: 055
  2. PREDNISONE. [Interacting]
     Active Substance: PREDNISONE
     Indication: BRONCHOPULMONARY ASPERGILLOSIS ALLERGIC
     Dosage: 40 MG/DAY
     Route: 048
  3. PREDNISONE. [Interacting]
     Active Substance: PREDNISONE
     Dosage: 5 MG/DAY
  4. GLUCOSE [Interacting]
     Active Substance: DEXTROSE
     Indication: PRODUCT USED FOR UNKNOWN INDICATION
     Dosage: UNK
  5. FLIXOTIDE [Interacting]
     Active Substance: FLUTICASONE PROPIONATE
  6. PREDNISONE. [Interacting]
     Active Substance: PREDNISONE
     Dosage: 10 MG/DAY
     Route: 048
  7. CEFTAZIDIME. [Concomitant]
     Active Substance: CEFTAZIDIME
     Indication: PRODUCT USED FOR UNKNOWN INDICATION
     Dosage: UNK
  8. ITRACONAZOLE. [Interacting]
     Active Substance: ITRACONAZOLE
     Indication: BRONCHOPULMONARY ASPERGILLOSIS ALLERGIC
     Dosage: 100 MG/DAY
     Route: 048
  9. SERETIDE [Interacting]
     Active Substance: FLUTICASONE PROPIONATE\SALMETEROL XINAFOATE
     Indication: BRONCHOPULMONARY ASPERGILLOSIS ALLERGIC
     Dosage: 25?G/125?G
  10. FLIXONASE [Interacting]
     Active Substance: FLUTICASONE PROPIONATE
     Indication: BRONCHOPULMONARY ASPERGILLOSIS ALLERGIC
     Dosage: 50 ?G/SPRAY, 1 SPRAY IN EACH NOSTRIL TWICE A DAY
     Route: 055
  11. PREDNISONE. [Interacting]
     Active Substance: PREDNISONE
     Dosage: 20 MG/DAY
     Route: 048
  12. TOBRAMYCIN. [Concomitant]
     Active Substance: TOBRAMYCIN
     Indication: PRODUCT USED FOR UNKNOWN INDICATION
     Dosage: UNK
  13. ISOPHANE INSULIN SUSPENSION [Concomitant]
     Indication: HYPERGLYCAEMIA
     Dosage: UNK

REACTIONS (11)
  - Headache [Unknown]
  - Tremor [Recovered/Resolved]
  - Nocturia [Recovered/Resolved]
  - Vomiting [Recovered/Resolved]
  - Hyperglycaemic hyperosmolar nonketotic syndrome [Recovered/Resolved]
  - Drug interaction [Recovered/Resolved]
  - Hyperglycaemia [Recovered/Resolved]
  - Lethargy [Recovered/Resolved]
  - Polydipsia [Recovered/Resolved]
  - Nausea [Recovered/Resolved]
  - Polyuria [Recovered/Resolved]
